FAERS Safety Report 8281571-4 (Version None)
Quarter: 2012Q2

REPORT INFORMATION
  Report Type: 
  Country: None (occurrence: None)
  Receive Date: 20120413
  Receipt Date: 20120404
  Transmission Date: 20120825
  Serious: Yes (Hospitalization, Other)
  Sender: FDA-Public Use
  Company Number: US-JNJFOC-20110903971

PATIENT
  Sex: Female
  Weight: 74.39 kg

DRUGS (7)
  1. DURAGESIC-100 [Suspect]
     Indication: PRODUCT USED FOR UNKNOWN INDICATION
     Dosage: 100 UG X 5 PATCHES
     Route: 062
     Dates: end: 20030101
  2. DURAGESIC-100 [Suspect]
     Dosage: 100 UG X 5 PATCH
     Route: 062
     Dates: start: 20030101
  3. DURAGESIC-100 [Suspect]
     Dosage: 100 UG X 6 PATCHES
     Route: 062
     Dates: start: 20030101
  4. DURAGESIC-100 [Suspect]
     Route: 062
     Dates: start: 20020101
  5. DURAGESIC-100 [Suspect]
     Dosage: 100 UG X 4 PATCH AND 50 UG X 1 PATCH
     Route: 062
     Dates: start: 20030101
  6. VALIUM [Concomitant]
     Indication: MUSCLE SPASMS
     Route: 048
  7. DURAGESIC-100 [Suspect]
     Dosage: 100 UG X 6 PATCH
     Route: 062
     Dates: start: 20030101

REACTIONS (7)
  - DRUG INEFFECTIVE [None]
  - ROAD TRAFFIC ACCIDENT [None]
  - DRUG DOSE OMISSION [None]
  - STAPHYLOCOCCAL INFECTION [None]
  - CERVICAL VERTEBRAL FRACTURE [None]
  - SPINAL CORD COMPRESSION [None]
  - DRUG PRESCRIBING ERROR [None]
